FAERS Safety Report 8558097-3 (Version None)
Quarter: 2012Q3

REPORT INFORMATION
  Report Type: 
  Country: None (occurrence: None)
  Receive Date: 20120801
  Receipt Date: 20120720
  Transmission Date: 20120928
  Serious: Yes (Disabling, Other)
  Sender: FDA-Public Use
  Company Number: US-ACTELION-A-US2012-69068

PATIENT
  Age: 64 Year
  Sex: Female

DRUGS (2)
  1. TRACLEER [Suspect]
     Indication: PULMONARY ARTERIAL HYPERTENSION
     Dosage: UNK
     Route: 048
  2. ASPIRIN [Concomitant]

REACTIONS (5)
  - EYE OEDEMA [None]
  - VISION BLURRED [None]
  - EYE HAEMORRHAGE [None]
  - NEPHROSCLEROSIS [None]
  - NAUSEA [None]
